FAERS Safety Report 6681623-6 (Version None)
Quarter: 2010Q2

REPORT INFORMATION
  Report Type: 
  Country: None (occurrence: None)
  Receive Date: 20100414
  Receipt Date: 20100408
  Transmission Date: 20101027
  Serious: Yes (Death, Hospitalization)
  Sender: FDA-Public Use
  Company Number: KR-CELGENEUS-090-CCAZA-10032811

PATIENT
  Sex: Female

DRUGS (2)
  1. AZACITIDINE [Suspect]
     Route: 065
     Dates: start: 20070727, end: 20080117
  2. AZACITIDINE [Suspect]
     Route: 065
     Dates: start: 20081027

REACTIONS (2)
  - ASTHENIA [None]
  - MULTI-ORGAN FAILURE [None]
